FAERS Safety Report 24764856 (Version 1)
Quarter: 2024Q4

REPORT INFORMATION
  Report Type: Spontaneous
  Country: JP (occurrence: JP)
  Receive Date: 20241223
  Receipt Date: 20241223
  Transmission Date: 20250115
  Serious: Yes (Other)
  Sender: ASTELLAS
  Company Number: JP-GILEAD-2024-0697393

PATIENT

DRUGS (2)
  1. AMBISOME [Suspect]
     Active Substance: AMPHOTERICIN B
     Indication: Meningitis cryptococcal
     Dosage: UNK
     Route: 042
     Dates: start: 20241211
  2. FLUCYTOSINE [Concomitant]
     Active Substance: FLUCYTOSINE
     Indication: Meningitis cryptococcal
     Dosage: UNK
     Route: 065
     Dates: start: 20241211

REACTIONS (2)
  - Hypokalaemia [Unknown]
  - Myelosuppression [Unknown]

NARRATIVE: CASE EVENT DATE: 20241212
